FAERS Safety Report 4414942-4 (Version None)
Quarter: 2004Q3

REPORT INFORMATION
  Report Type: 
  Country: None (occurrence: None)
  Receive Date: 20040730
  Receipt Date: 20040716
  Transmission Date: 20050211
  Serious: Yes (Hospitalization, Other)
  Sender: FDA-Public Use
  Company Number: 2004S1002093

PATIENT
  Age: 47 Year
  Sex: Female
  Weight: 63.9572 kg

DRUGS (3)
  1. ATENOLOL [Suspect]
     Indication: HYPERTENSION
     Dosage: 25 MG BID, 50 MG BID, ORAL
     Route: 048
     Dates: start: 20040703, end: 20040707
  2. DIOVAN [Suspect]
     Indication: HYPERTENSION
     Dosage: 160 MG QD, 160 MG BID, ORAL
     Route: 048
     Dates: start: 20040707
  3. AMLODIPINE [Concomitant]

REACTIONS (10)
  - ANXIETY [None]
  - BLOOD PRESSURE INCREASED [None]
  - DYSPNOEA [None]
  - EYE DISORDER [None]
  - FATIGUE [None]
  - HYPOAESTHESIA [None]
  - MUSCLE TWITCHING [None]
  - NERVOUSNESS [None]
  - NIGHTMARE [None]
  - RENAL DISORDER [None]
